FAERS Safety Report 4459300-1 (Version None)
Quarter: 2004Q3

REPORT INFORMATION
  Report Type: 
  Country: None (occurrence: None)
  Receive Date: 20040927
  Receipt Date: 20040915
  Transmission Date: 20050211
  Serious: Yes (Other)
  Sender: FDA-Public Use
  Company Number: DE-BRISTOL-MYERS SQUIBB COMPANY-12703070

PATIENT
  Sex: Female

DRUGS (1)
  1. VOLON-A INJ [Suspect]
     Route: 030

REACTIONS (3)
  - BLINDNESS TRANSIENT [None]
  - HOIGNE'S SYNDROME [None]
  - SCINTILLATING SCOTOMA [None]
